FAERS Safety Report 19410365 (Version 1)
Quarter: 2021Q2

REPORT INFORMATION
  Report Type: Spontaneous
  Country: US (occurrence: US)
  Receive Date: 20210611
  Receipt Date: 20210611
  Transmission Date: 20210717
  Serious: Yes (Life-Threatening, Disabling, Other)
  Sender: FDA-Public Use
  Company Number: None

PATIENT
  Age: 57 Year
  Sex: Male
  Weight: 99 kg

DRUGS (22)
  1. DIAZEPAM. [Concomitant]
     Active Substance: DIAZEPAM
  2. FLOUROMETHALONE [Concomitant]
     Active Substance: FLUOROMETHOLONE
  3. VITAMIN D3 [Concomitant]
     Active Substance: CHOLECALCIFEROL
  4. XELJANZ XR [Suspect]
     Active Substance: TOFACITINIB CITRATE
     Indication: RHEUMATOID ARTHRITIS
     Dosage: QUANTITY:1 TABLET(S);?
     Route: 048
     Dates: start: 20190901, end: 20210214
  5. VERAPAMIL [Concomitant]
     Active Substance: VERAPAMIL HYDROCHLORIDE
  6. FUROSEMIDE. [Concomitant]
     Active Substance: FUROSEMIDE
  7. LOMOTIL [Concomitant]
     Active Substance: ATROPINE SULFATE\DIPHENOXYLATE HYDROCHLORIDE
  8. AMOXICILLIN. [Concomitant]
     Active Substance: AMOXICILLIN
  9. LIPITOR [Concomitant]
     Active Substance: ATORVASTATIN CALCIUM
  10. TUMS [Concomitant]
     Active Substance: CALCIUM CARBONATE
  11. VITAMIN B COMPLEX [Concomitant]
     Active Substance: CYANOCOBALAMIN\DEXPANTHENOL\NIACINAMIDE\PYRIDOXINE HYDROCHLORIDE\RIBOFLAVIN 5^-PHOSPHATE SODIUM\THIAMINE HYDROCHLORIDE\VITAMIN B COMPLEX
  12. BABY ASPIRIN [Concomitant]
     Active Substance: ASPIRIN
  13. PREDNISONE. [Concomitant]
     Active Substance: PREDNISONE
  14. OXYGEN. [Suspect]
     Active Substance: OXYGEN
  15. OXYCODONE [Concomitant]
     Active Substance: OXYCODONE
  16. MAGNESIUM [Concomitant]
     Active Substance: MAGNESIUM
  17. GLUCOSAMINE CHONDROITON [Concomitant]
  18. FISH OIL [Concomitant]
     Active Substance: FISH OIL
  19. FLONASE [Concomitant]
     Active Substance: FLUTICASONE PROPIONATE
  20. IBUPROFEN. [Concomitant]
     Active Substance: IBUPROFEN
  21. LISINOPRIL. [Concomitant]
     Active Substance: LISINOPRIL
  22. IRON [Concomitant]
     Active Substance: IRON

REACTIONS (11)
  - Condition aggravated [None]
  - Oxygen saturation abnormal [None]
  - Palpitations [None]
  - Loss of personal independence in daily activities [None]
  - Renal impairment [None]
  - Cor pulmonale [None]
  - General physical health deterioration [None]
  - Pulmonary embolism [None]
  - Fibrin D dimer increased [None]
  - Pain [None]
  - Disability [None]

NARRATIVE: CASE EVENT DATE: 20210221
